FAERS Safety Report 9502199 (Version 2)
Quarter: 2013Q4

REPORT INFORMATION
  Report Type: Spontaneous
  Country: JP (occurrence: JP)
  Receive Date: 20130906
  Receipt Date: 20131004
  Transmission Date: 20140711
  Serious: Yes (Other)
  Sender: FDA-Public Use
  Company Number: JP-JNJFOC-20130902082

PATIENT
  Age: 4 Year
  Sex: Female

DRUGS (3)
  1. ZYRTEC DRY SYRUP 1.25% [Suspect]
     Route: 048
  2. ZYRTEC DRY SYRUP 1.25% [Suspect]
     Indication: RHINITIS ALLERGIC
     Route: 048
     Dates: start: 20130827, end: 20130827
  3. ONON [Concomitant]
     Indication: RHINITIS ALLERGIC
     Route: 048

REACTIONS (1)
  - Hallucination [Recovered/Resolved]
